FAERS Safety Report 14260888 (Version 3)
Quarter: 2023Q4

REPORT INFORMATION
  Report Type: Spontaneous
  Country: US (occurrence: US)
  Receive Date: 20171207
  Receipt Date: 20231222
  Transmission Date: 20240110
  Serious: Yes (Hospitalization, Other)
  Sender: FDA-Public Use
  Company Number: US-JAZZ-2017-US-016226

PATIENT
  Age: 24 Year
  Sex: Male

DRUGS (9)
  1. XYREM [Suspect]
     Active Substance: SODIUM OXYBATE
     Indication: Product used for unknown indication
     Dosage: UNK
     Route: 048
  2. CLONAZEPAM [Suspect]
     Active Substance: CLONAZEPAM
     Indication: Product used for unknown indication
  3. METHYLPHENIDATE [Suspect]
     Active Substance: METHYLPHENIDATE
     Indication: Product used for unknown indication
  4. ZOLPIDEM [Suspect]
     Active Substance: ZOLPIDEM TARTRATE
     Indication: Product used for unknown indication
  5. SERTRALINE [Suspect]
     Active Substance: SERTRALINE HYDROCHLORIDE
     Indication: Product used for unknown indication
  6. LITHIUM [Suspect]
     Active Substance: LITHIUM
     Indication: Product used for unknown indication
  7. MODAFINIL [Suspect]
     Active Substance: MODAFINIL
     Indication: Product used for unknown indication
  8. BUPROPION [Suspect]
     Active Substance: BUPROPION
     Indication: Product used for unknown indication
  9. ALCOHOL [Suspect]
     Active Substance: ALCOHOL
     Indication: Product used for unknown indication
     Route: 048

REACTIONS (16)
  - Haemorrhage [Recovered/Resolved]
  - Choking [Recovered/Resolved]
  - Pulmonary oedema [Recovered/Resolved]
  - Unresponsive to stimuli [Recovered/Resolved]
  - Conduction disorder [Recovered/Resolved]
  - Cough [Recovered/Resolved]
  - Electrolyte imbalance [Recovered/Resolved]
  - Miosis [Recovered/Resolved]
  - Unevaluable event [Recovered/Resolved]
  - Haemoptysis [Recovered/Resolved]
  - Tachycardia [Not Recovered/Not Resolved]
  - Atelectasis [Recovered/Resolved]
  - X-ray abnormal [Recovered/Resolved]
  - Hyperhidrosis [Recovered/Resolved]
  - Suicide attempt [Unknown]
  - Coma [Recovered/Resolved]
